FAERS Safety Report 9186345 (Version 3)
Quarter: 2014Q1

REPORT INFORMATION
  Report Type: Spontaneous
  Country: US (occurrence: US)
  Receive Date: 20130325
  Receipt Date: 20140114
  Transmission Date: 20141002
  Serious: No
  Sender: FDA-Public Use
  Company Number: US-009507513-1303USA010279

PATIENT
  Age: 73 Year
  Sex: Female

DRUGS (9)
  1. PEGINTRON [Suspect]
     Indication: ESSENTIAL THROMBOCYTHAEMIA
     Dosage: 1 INJECTION WEEKLY
     Route: 058
     Dates: start: 20120923
  2. ANAGRELIDE HYDROCHLORIDE [Concomitant]
  3. RULIDE [Concomitant]
  4. SYNTHROID [Concomitant]
  5. ACYCLOVIR [Concomitant]
  6. ASPIRIN [Concomitant]
  7. CALCIUM (UNSPECIFIED) [Concomitant]
  8. MAGNESIUM (UNSPECIFIED) [Concomitant]
  9. STRONTIUM (UNSPECIFIED) [Concomitant]

REACTIONS (9)
  - Injection site haemorrhage [Recovered/Resolved]
  - Erythema [Recovered/Resolved]
  - Injection site erythema [Unknown]
  - Injection site erythema [Recovering/Resolving]
  - Injection site erythema [Recovered/Resolved]
  - Insomnia [Not Recovered/Not Resolved]
  - Fatigue [Not Recovered/Not Resolved]
  - Product quality issue [Unknown]
  - Off label use [Unknown]
